FAERS Safety Report 8973964 (Version 1)
Quarter: 2012Q4

REPORT INFORMATION
  Report Type: 
  Country: US (occurrence: US)
  Receive Date: 20121218
  Receipt Date: 20121218
  Transmission Date: 20130627
  Serious: Yes (Other)
  Sender: FDA-Public Use
  Company Number: US-BRISTOL-MYERS SQUIBB COMPANY-16393043

PATIENT
  Age: 16 Year
  Sex: Male
  Weight: 88 kg

DRUGS (2)
  1. ABILIFY [Suspect]
     Dosage: Dose decreased: 1mg
  2. ZOLOFT [Concomitant]

REACTIONS (1)
  - Weight increased [Unknown]
